FAERS Safety Report 25826945 (Version 1)
Quarter: 2025Q3

REPORT INFORMATION
  Report Type: Report from Study
  Country: EU (occurrence: EU)
  Receive Date: 20250920
  Receipt Date: 20250920
  Transmission Date: 20251020
  Serious: Yes (Death, Other)
  Sender: ABBVIE
  Company Number: EU-JNJFOC-20250913925

PATIENT

DRUGS (2)
  1. IMBRUVICA [Suspect]
     Active Substance: IBRUTINIB
     Indication: Waldenstrom^s macroglobulinaemia
     Route: 048
  2. ZANUBRUTINIB [Suspect]
     Active Substance: ZANUBRUTINIB
     Indication: Waldenstrom^s macroglobulinaemia
     Route: 065

REACTIONS (16)
  - Respiratory failure [Fatal]
  - Haemorrhage [Unknown]
  - COVID-19 [Unknown]
  - Atrial fibrillation [Unknown]
  - Neutropenia [Unknown]
  - Tachycardia [Unknown]
  - COVID-19 pneumonia [Fatal]
  - Pericarditis [Recovered/Resolved]
  - Bladder transitional cell carcinoma [Unknown]
  - Rectal haemorrhage [Unknown]
  - Haematuria [Not Recovered/Not Resolved]
  - Herpes zoster reactivation [Unknown]
  - Atrial flutter [Unknown]
  - Infection [Unknown]
  - Thrombocytopenia [Unknown]
  - Stoma site haemorrhage [Unknown]
